FAERS Safety Report 6813398-1 (Version None)
Quarter: 2010Q2

REPORT INFORMATION
  Report Type: 
  Country: None (occurrence: None)
  Receive Date: 20100628
  Receipt Date: 20100614
  Transmission Date: 20101027
  Serious: Yes (Other)
  Sender: FDA-Public Use
  Company Number: ACO_01138_2010

PATIENT
  Age: 47 Year
  Sex: Female

DRUGS (7)
  1. AMPYRA [Suspect]
     Indication: DRUG USE FOR UNKNOWN INDICATION
     Dosage: 10 MG BID, ORAL (10 MG QD ORAL)
     Route: 048
     Dates: start: 20100518, end: 20100608
  2. AMPYRA [Suspect]
     Indication: DRUG USE FOR UNKNOWN INDICATION
     Dosage: 10 MG BID, ORAL (10 MG QD ORAL)
     Route: 048
     Dates: start: 20100608
  3. HYDROCODONE BITARTRATE [Concomitant]
  4. LISINOPRIL [Concomitant]
  5. LASIX [Concomitant]
  6. POTASSIUM CHLORIDE [Concomitant]
  7. TYSABRI [Concomitant]

REACTIONS (5)
  - DROOLING [None]
  - SYNCOPE [None]
  - THERAPEUTIC RESPONSE UNEXPECTED [None]
  - TONGUE BITING [None]
  - TREMOR [None]
